FAERS Safety Report 23176894 (Version 1)
Quarter: 2023Q4

REPORT INFORMATION
  Report Type: Spontaneous
  Country: US (occurrence: None)
  Receive Date: 20231111
  Receipt Date: 20231111
  Transmission Date: 20240110
  Serious: Yes (Other)
  Sender: FDA-Public Use
  Company Number: None

PATIENT
  Age: 61 Year
  Sex: Female
  Weight: 58.5 kg

DRUGS (14)
  1. PAXLOVID [Suspect]
     Active Substance: NIRMATRELVIR\RITONAVIR
     Indication: COVID-19
     Dosage: OTHER QUANTITY : 3 TABLET(S);?FREQUENCY : TWICE A DAY;?
     Route: 048
     Dates: start: 20231017, end: 20231021
  2. NEFAZODONE [Suspect]
     Active Substance: NEFAZODONE
  3. ESTRADIOL [Concomitant]
     Active Substance: ESTRADIOL
  4. VITAMIN D3 [Concomitant]
     Active Substance: CHOLECALCIFEROL
  5. BORON [Concomitant]
     Active Substance: BORON
  6. C [Concomitant]
  7. K1/ K2 [Concomitant]
  8. ZINC [Concomitant]
     Active Substance: PYRITHIONE ZINC\ZINC\ZINC CHLORIDE
  9. KELP [Concomitant]
     Active Substance: KELP
  10. FISH OIL [Concomitant]
     Active Substance: FISH OIL
  11. HERBALS [Concomitant]
     Active Substance: HERBALS
  12. Turkey Tail [Concomitant]
  13. Nettle Quecertin [Concomitant]
  14. PROBIOTICS NOS [Concomitant]
     Active Substance: PROBIOTICS NOS

REACTIONS (5)
  - Contraindicated product administered [None]
  - Contraindicated product prescribed [None]
  - Hallucination, visual [None]
  - Hallucination, auditory [None]
  - Therapy change [None]

NARRATIVE: CASE EVENT DATE: 20231017
